FAERS Safety Report 18464950 (Version 2)
Quarter: 2021Q4

REPORT INFORMATION
  Report Type: Report from Study
  Country: BR (occurrence: BR)
  Receive Date: 20201104
  Receipt Date: 20211119
  Transmission Date: 20220303
  Serious: No
  Sender: FDA-Public Use
  Company Number: BR-TAKEDA-2020TUS047917

PATIENT
  Age: 37 Year
  Sex: Female
  Weight: 58 kg

DRUGS (3)
  1. ICATIBANT [Suspect]
     Active Substance: ICATIBANT ACETATE
     Indication: Hereditary angioedema
     Dosage: 30 MILLIGRAM
     Route: 058
  2. ICATIBANT [Suspect]
     Active Substance: ICATIBANT ACETATE
     Indication: Hereditary angioedema
     Dosage: 30 MILLIGRAM
     Route: 058
  3. FLUOXETINE HYDROCHLORIDE [Concomitant]
     Active Substance: FLUOXETINE HYDROCHLORIDE
     Indication: Panic attack
     Dosage: UNK
     Route: 065
     Dates: start: 20190815

REACTIONS (10)
  - Panic disorder [Recovered/Resolved]
  - Feeding disorder [Recovered/Resolved]
  - Speech disorder [Recovered/Resolved]
  - Injection site mass [Recovered/Resolved]
  - Mouth swelling [Recovered/Resolved]
  - Chills [Recovered/Resolved]
  - Chest pain [Recovered/Resolved]
  - Injection site inflammation [Recovered/Resolved]
  - Dysphonia [Recovered/Resolved]
  - Injection site erythema [Recovered/Resolved]

NARRATIVE: CASE EVENT DATE: 20190815
